FAERS Safety Report 8886591 (Version 1)
Quarter: 2012Q4

REPORT INFORMATION
  Report Type: 
  Country: US (occurrence: US)
  Receive Date: 20121105
  Receipt Date: 20121105
  Transmission Date: 20130627
  Serious: Yes (Hospitalization, Other)
  Sender: FDA-Public Use
  Company Number: US-JNJFOC-20120609056

PATIENT
  Age: 77 Year
  Sex: Male

DRUGS (12)
  1. XARELTO [Suspect]
     Indication: CEREBROVASCULAR ACCIDENT PROPHYLAXIS
     Route: 048
     Dates: start: 20120328, end: 20120328
  2. XARELTO [Suspect]
     Indication: ATRIAL FIBRILLATION
     Route: 048
     Dates: start: 20120328, end: 20120328
  3. COREG [Concomitant]
  4. LISINOPRIL [Concomitant]
  5. FLOMAX [Concomitant]
  6. PRILOSEC [Concomitant]
  7. SIMVASTATIN [Concomitant]
  8. DYAZIDE [Concomitant]
  9. ALLOPURINOL [Concomitant]
  10. FINASTERIDE [Concomitant]
  11. BENADRYL [Concomitant]
  12. FLONASE [Concomitant]

REACTIONS (1)
  - Haemorrhage [Recovered/Resolved]
